FAERS Safety Report 5695131-2 (Version None)
Quarter: 2008Q2

REPORT INFORMATION
  Report Type: 
  Country: None (occurrence: None)
  Receive Date: 20080404
  Receipt Date: 20080327
  Transmission Date: 20081010
  Serious: Yes (Hospitalization, Other)
  Sender: FDA-Public Use
  Company Number: JP-PFIZER INC-2008023745

PATIENT
  Sex: Female
  Weight: 2.9 kg

DRUGS (4)
  1. ZOLOFT [Suspect]
  2. LORAZEPAM [Concomitant]
  3. MEDIPEACE [Concomitant]
  4. SEPAZON [Concomitant]

REACTIONS (5)
  - DRUG EXPOSURE DURING PREGNANCY [None]
  - DRUG WITHDRAWAL SYNDROME NEONATAL [None]
  - HYPOTONIA [None]
  - NEONATAL ASPHYXIA [None]
  - TREMOR [None]
